FAERS Safety Report 9942870 (Version 1)
Quarter: 2014Q1

REPORT INFORMATION
  Report Type: Report from Study
  Country: US (occurrence: US)
  Receive Date: 20140303
  Receipt Date: 20140303
  Transmission Date: 20141002
  Serious: No
  Sender: FDA-Public Use
  Company Number: US-ABBVIE-13P-163-1046183-00

PATIENT
  Age: 69 Year
  Sex: Male

DRUGS (10)
  1. HUMIRA [Suspect]
     Indication: ANKYLOSING SPONDYLITIS
     Route: 058
     Dates: start: 20120402
  2. HUMIRA [Suspect]
  3. NOVOLOG [Concomitant]
     Indication: DIABETES MELLITUS
  4. LANTUS [Concomitant]
     Indication: DIABETES MELLITUS
  5. DIOVAN [Concomitant]
     Indication: HYPERTENSION
  6. AMLODIPINE [Concomitant]
     Indication: HYPERTENSION
  7. CRESTOR [Concomitant]
     Indication: BLOOD CHOLESTEROL INCREASED
  8. MULTIVITAMIN [Concomitant]
     Indication: SUPPLEMENTATION THERAPY
  9. IRON [Concomitant]
     Indication: IRON DEFICIENCY
  10. PREDNISONE [Concomitant]
     Indication: ANKYLOSING SPONDYLITIS

REACTIONS (1)
  - Influenza [Not Recovered/Not Resolved]
